FAERS Safety Report 4849533-4 (Version None)
Quarter: 2005Q4

REPORT INFORMATION
  Report Type: 
  Country: None (occurrence: None)
  Receive Date: 20051207
  Receipt Date: 20051128
  Transmission Date: 20060501
  Serious: Yes (Life-Threatening)
  Sender: FDA-Public Use
  Company Number: 2005JP001850

PATIENT
  Age: 70 Year
  Sex: Female
  Weight: 40 kg

DRUGS (9)
  1. FUNGUARD (MICAFUNGIN) INJECTION [Suspect]
     Indication: CANDIDIASIS
     Dosage: 50.00 MG, UID/QD, IV DRIP
     Route: 041
     Dates: start: 20050920, end: 20050920
  2. ZITHROMAX ^PFIZER^ (AZITHROMYCIN) TABLET [Concomitant]
  3. FULKAZIL (FLUCONAZOLE) CAPSULE [Concomitant]
  4. MINOMYCIN (MINOCYCLINE HYDROCHLORIDE) CAPSULE [Concomitant]
  5. CONIEL (BENIDIPINE HYDROCHLORIDE) TABLET [Concomitant]
  6. PANAPIDIN (TICLOPIDINE HYDROCHLORIDE) TABLET [Concomitant]
  7. MERISLON (BETAHISTINE HYDROCHLORIDE) TABLET [Concomitant]
  8. APONOL (IFENPRODIL TARTRATE) TABLET [Concomitant]
  9. PREDNISOLONE [Concomitant]

REACTIONS (3)
  - COLON CANCER [None]
  - LARGE INTESTINAL HAEMORRHAGE [None]
  - SHOCK [None]
